FAERS Safety Report 10781563 (Version 4)
Quarter: 2015Q2

REPORT INFORMATION
  Report Type: Spontaneous
  Country: US (occurrence: US)
  Receive Date: 20150210
  Receipt Date: 20150623
  Transmission Date: 20150821
  Serious: Yes (Other)
  Sender: FDA-Public Use
  Company Number: US-GILEAD-2015-0136015

PATIENT
  Age: 61 Year
  Sex: Male

DRUGS (1)
  1. HARVONI [Suspect]
     Active Substance: LEDIPASVIR\SOFOSBUVIR
     Indication: HEPATITIS C
     Dosage: 1 DF, QD
     Route: 048
     Dates: start: 20141217

REACTIONS (9)
  - Abdominal pain [Unknown]
  - Subcutaneous abscess [Unknown]
  - Irritability [Unknown]
  - Fatigue [Unknown]
  - Asthenia [Unknown]
  - Frustration [Unknown]
  - Flatulence [Unknown]
  - Diarrhoea [Unknown]
  - Memory impairment [Unknown]

NARRATIVE: CASE EVENT DATE: 201412
